FAERS Safety Report 7722454-5 (Version None)
Quarter: 2011Q3

REPORT INFORMATION
  Report Type: 
  Country: None (occurrence: None)
  Receive Date: 20110831
  Receipt Date: 20110823
  Transmission Date: 20111222
  Serious: Yes (Hospitalization, Other)
  Sender: FDA-Public Use
  Company Number: US-BAYER-201037794NA

PATIENT
  Age: 19 Year
  Sex: Female
  Weight: 76.19 kg

DRUGS (6)
  1. PHENERGAN [Concomitant]
  2. YAZ [Suspect]
     Indication: PREMENSTRUAL SYNDROME
  3. PERCOCET [Concomitant]
  4. YAZ [Suspect]
     Indication: MENSTRUAL CYCLE MANAGEMENT
     Dosage: UNK
     Route: 048
     Dates: start: 20080301, end: 20100101
  5. DILAUDID [Concomitant]
  6. DARVOCET-N 50 [Concomitant]
     Dosage: UNK UNK, PRN
     Route: 048

REACTIONS (13)
  - VOMITING [None]
  - ABDOMINAL DISCOMFORT [None]
  - GALLBLADDER ENLARGEMENT [None]
  - NAUSEA [None]
  - CHOLELITHIASIS [None]
  - BILE DUCT STONE [None]
  - GALLBLADDER INJURY [None]
  - HEPATIC ENZYME INCREASED [None]
  - CHOLANGITIS [None]
  - JAUNDICE [None]
  - CHOLECYSTITIS [None]
  - BLOOD BILIRUBIN INCREASED [None]
  - ABDOMINAL PAIN UPPER [None]
